FAERS Safety Report 7600400-2 (Version None)
Quarter: 2011Q3

REPORT INFORMATION
  Report Type: 
  Country: None (occurrence: None)
  Receive Date: 20110706
  Receipt Date: 20110706
  Transmission Date: 20111222
  Serious: Yes (Other)
  Sender: FDA-Public Use
  Company Number: None

PATIENT
  Sex: Male
  Weight: 184.1 kg

DRUGS (1)
  1. TOPAMAX [Suspect]
     Indication: JUVENILE MYOCLONIC EPILEPSY
     Dosage: ONE BID PO
     Route: 048
     Dates: start: 20090917

REACTIONS (1)
  - CONVULSION [None]
